FAERS Safety Report 7232047-4 (Version None)
Quarter: 2011Q1

REPORT INFORMATION
  Report Type: 
  Country: None (occurrence: None)
  Receive Date: 20110118
  Receipt Date: 20110111
  Transmission Date: 20110831
  Serious: Yes (Other)
  Sender: FDA-Public Use
  Company Number: FR-ELI_LILLY_AND_COMPANY-FR201007004488

PATIENT
  Age: 73 Year
  Sex: Male
  Weight: 90 kg

DRUGS (10)
  1. BYETTA [Suspect]
     Dosage: 5 UG, 2/D
     Route: 058
     Dates: end: 20100720
  2. FENOFIBRATE [Concomitant]
     Indication: DYSLIPIDAEMIA
     Dosage: 200 MG, DAILY (1/D)
     Route: 048
     Dates: start: 20080101
  3. ZOLIDAM [Concomitant]
     Indication: INSOMNIA
     Dosage: 10 MG, DAILY (1/D)
     Route: 048
  4. BYETTA [Suspect]
     Indication: TYPE 2 DIABETES MELLITUS
     Dosage: 10 UG, UNKNOWN
     Route: 058
     Dates: start: 20080707, end: 20100405
  5. COTAREG [Concomitant]
     Indication: HYPERTENSION
     Dosage: UNK, UNKNOWN
     Route: 048
     Dates: start: 20090901
  6. CLONIDINE HCL [Concomitant]
     Indication: HYPERTENSION
     Dosage: 0.075 MG, UNKNOWN
     Route: 048
     Dates: start: 20090901
  7. METFORMIN HCL [Concomitant]
     Indication: DIABETES MELLITUS
     Dosage: 3 G, DAILY (1/D)
     Route: 048
     Dates: start: 20020101
  8. DIAMICRON [Concomitant]
     Indication: DIABETES MELLITUS
     Dosage: 120 MG, DAILY (1/D)
     Route: 048
     Dates: start: 20040101
  9. LOGIMAX [Concomitant]
     Indication: HYPERTENSION
     Dosage: UNK, UNKNOWN
     Route: 048
  10. BYETTA [Suspect]
     Dosage: 10 UG, 2/D
     Route: 058
     Dates: start: 20100406

REACTIONS (4)
  - DIVERTICULUM [None]
  - DIARRHOEA [None]
  - PANCREATITIS CHRONIC [None]
  - CHOLELITHIASIS [None]
